FAERS Safety Report 7198274-X (Version None)
Quarter: 2010Q4

REPORT INFORMATION
  Report Type: 
  Country: None (occurrence: None)
  Receive Date: 20101223
  Receipt Date: 20101223
  Transmission Date: 20110411
  Serious: Yes (Hospitalization)
  Sender: FDA-Public Use
  Company Number: None

PATIENT
  Sex: Male
  Weight: 92.0802 kg

DRUGS (8)
  1. NILUTAMIDE 150MG UNKNOWN [Suspect]
     Indication: PROSTATE CANCER
     Dates: start: 20100910, end: 20101110
  2. CIPROFLOXACIN [Suspect]
     Indication: PROPHYLAXIS
     Dosage: 500MG BID PO
     Route: 048
     Dates: start: 20101115, end: 20101120
  3. SPIRONOLACTONE [Concomitant]
  4. FUROSEMIDE [Concomitant]
  5. POTASSIUM CHLORIDE [Concomitant]
  6. MULTI-VITAMIN [Concomitant]
  7. FISH OIL [Concomitant]
  8. CALCIUM [Concomitant]

REACTIONS (4)
  - APHAGIA [None]
  - HYPOXIA [None]
  - LUNG INFILTRATION [None]
  - MALAISE [None]
